FAERS Safety Report 7787629-8 (Version None)
Quarter: 2011Q3

REPORT INFORMATION
  Report Type: 
  Country: None (occurrence: None)
  Receive Date: 20110929
  Receipt Date: 20110922
  Transmission Date: 20111222
  Serious: Yes (Disabling)
  Sender: FDA-Public Use
  Company Number: US-B.I. PHARMACEUTICALS,INC./RIDGEFIELD-2011-BP-18702BP

PATIENT
  Age: 62 Year
  Sex: Male
  Weight: 80.29 kg

DRUGS (3)
  1. PRADAXA [Suspect]
     Indication: ATRIAL FIBRILLATION
     Route: 048
  2. PRADAXA [Suspect]
     Indication: CORONARY ARTERY DISEASE
  3. PREDNISONE [Concomitant]

REACTIONS (2)
  - POLYARTHRITIS [None]
  - RHEUMATOID ARTHRITIS [None]
